FAERS Safety Report 10787254 (Version 2)
Quarter: 2015Q1

REPORT INFORMATION
  Report Type: Spontaneous
  Country: US (occurrence: US)
  Receive Date: 20150211
  Receipt Date: 20150309
  Transmission Date: 20150721
  Serious: No
  Sender: FDA-Public Use
  Company Number: US-009507513-1502USA005142

PATIENT
  Sex: Male

DRUGS (1)
  1. ASMANEX [Suspect]
     Active Substance: MOMETASONE FUROATE
     Dosage: 220 MICROGRAM, QD (ONE PUFF EVERY DAY)
     Route: 055
     Dates: start: 2014

REACTIONS (4)
  - Product quality issue [Unknown]
  - Communication disorder [Not Recovered/Not Resolved]
  - Drug dose omission [Unknown]
  - Speech disorder [Not Recovered/Not Resolved]
